FAERS Safety Report 4520850-0 (Version None)
Quarter: 2004Q4

REPORT INFORMATION
  Report Type: 
  Country: None (occurrence: None)
  Receive Date: 20041208
  Receipt Date: 20041129
  Transmission Date: 20050328
  Serious: Yes (Other)
  Sender: FDA-Public Use
  Company Number: CA-JNJFOC-20041200086

PATIENT
  Sex: Male
  Weight: 88.5 kg

DRUGS (10)
  1. REMICADE [Suspect]
     Dosage: TOTAL OF 4 INFUSIONS
     Route: 042
  2. REMICADE [Suspect]
     Route: 042
  3. REMICADE [Suspect]
     Indication: ARTHRITIS
     Route: 042
  4. PREDNISONE [Concomitant]
     Indication: ARTHRITIS
     Route: 049
  5. FOSAMAX [Concomitant]
     Indication: OSTEOPOROSIS
     Route: 049
  6. CALCIUM D [Concomitant]
     Route: 049
  7. CALCIUM D [Concomitant]
     Route: 049
  8. CALCIUM D [Concomitant]
     Route: 049
  9. METHOTREXATE [Concomitant]
     Route: 058
  10. FOLIC ACID [Concomitant]
     Route: 049

REACTIONS (8)
  - BODY TEMPERATURE DECREASED [None]
  - CHEST DISCOMFORT [None]
  - CHILLS [None]
  - COUGH [None]
  - FLUSHING [None]
  - INFUSION RELATED REACTION [None]
  - SCLERAL DISCOLOURATION [None]
  - SCLERAL HYPERAEMIA [None]
